FAERS Safety Report 4815100-1 (Version None)
Quarter: 2005Q4

REPORT INFORMATION
  Report Type: 
  Country: None (occurrence: None)
  Receive Date: 20051027
  Receipt Date: 20051019
  Transmission Date: 20060501
  Serious: Yes (Hospitalization, Other)
  Sender: FDA-Public Use
  Company Number: 2005144553

PATIENT
  Age: 82 Year
  Sex: Female
  Weight: 50.3493 kg

DRUGS (6)
  1. NORVASC [Suspect]
     Indication: ANGINA PECTORIS
     Dosage: 2.5 MG (2.5 MG, 1 IN 1 D)
  2. NORVASC [Suspect]
     Indication: HYPERTENSION
     Dosage: 2.5 MG (2.5 MG, 1 IN 1 D)
  3. ZOCOR [Concomitant]
  4. VITAMINS (VITAMINS) [Concomitant]
  5. ASPIRIN [Concomitant]
  6. ATENOLOL [Concomitant]

REACTIONS (7)
  - ANGINA PECTORIS [None]
  - BODY HEIGHT DECREASED [None]
  - CARDIAC DISORDER [None]
  - CHEST PAIN [None]
  - CORONARY ARTERY OCCLUSION [None]
  - MICTURITION URGENCY [None]
  - POLLAKIURIA [None]
